FAERS Safety Report 8126817-8 (Version None)
Quarter: 2012Q1

REPORT INFORMATION
  Report Type: 
  Country: None (occurrence: None)
  Receive Date: 20120210
  Receipt Date: 20120203
  Transmission Date: 20120608
  Serious: No
  Sender: FDA-Public Use
  Company Number: US-BIOGENIDEC-2012BI004553

PATIENT
  Sex: Female

DRUGS (2)
  1. TYSABRI [Suspect]
     Indication: MULTIPLE SCLEROSIS
     Route: 042
     Dates: start: 20070712, end: 20090225
  2. TYSABRI [Suspect]
     Route: 042
     Dates: start: 20110221

REACTIONS (5)
  - BALANCE DISORDER [None]
  - OEDEMA PERIPHERAL [None]
  - FALL [None]
  - FATIGUE [None]
  - ASTHENIA [None]
